FAERS Safety Report 24178113 (Version 2)
Quarter: 2024Q3

REPORT INFORMATION
  Report Type: Spontaneous
  Country: US (occurrence: US)
  Receive Date: 20240806
  Receipt Date: 20240830
  Transmission Date: 20241017
  Serious: No
  Sender: ROCHE
  Company Number: US-ROCHE-10000048274

PATIENT
  Age: 81 Year

DRUGS (11)
  1. VABYSMO [Suspect]
     Active Substance: FARICIMAB\FARICIMAB-SVOA
     Indication: Neovascular age-related macular degeneration
     Route: 031
     Dates: start: 20240516
  2. FINASTERIDE [Concomitant]
     Active Substance: FINASTERIDE
     Route: 065
  3. METOPROLOL [Concomitant]
     Active Substance: METOPROLOL
     Route: 065
  4. CLOPIDOGREL [Concomitant]
     Active Substance: CLOPIDOGREL BISULFATE
     Route: 065
  5. ROSUVASTATIN [Concomitant]
     Active Substance: ROSUVASTATIN\ROSUVASTATIN CALCIUM
     Route: 065
  6. TAMSULOSIN [Concomitant]
     Active Substance: TAMSULOSIN
     Route: 065
  7. LISINOPRIL [Concomitant]
     Active Substance: LISINOPRIL
     Route: 065
  8. METFORMIN [Concomitant]
     Active Substance: METFORMIN HYDROCHLORIDE
     Route: 065
  9. LINAGLIPTIN [Concomitant]
     Active Substance: LINAGLIPTIN
     Route: 065
  10. VITAMIN D3 [Concomitant]
     Active Substance: CHOLECALCIFEROL
     Route: 065
  11. FENOFIBRATE [Concomitant]
     Active Substance: FENOFIBRATE
     Route: 065

REACTIONS (1)
  - Eye inflammation [Recovered/Resolved]

NARRATIVE: CASE EVENT DATE: 20240611
